FAERS Safety Report 7775284-2 (Version None)
Quarter: 2011Q3

REPORT INFORMATION
  Report Type: 
  Country: None (occurrence: None)
  Receive Date: 20110921
  Receipt Date: 20110908
  Transmission Date: 20111222
  Serious: Yes (Hospitalization)
  Sender: FDA-Public Use
  Company Number: DSA_47576_2011

PATIENT
  Age: 55 Year
  Sex: Female

DRUGS (1)
  1. DILTIAZEM [Suspect]
     Indication: PRODUCT USED FOR UNKNOWN INDICATION
     Dosage: (8.4 G 1X, NOT THE PRESCRIBED AMOUNT ORAL)
     Route: 048

REACTIONS (10)
  - ORGAN FAILURE [None]
  - HYPOTENSION [None]
  - SINUS BRADYCARDIA [None]
  - METABOLIC ACIDOSIS [None]
  - BLOOD LACTIC ACID INCREASED [None]
  - RENAL FAILURE ACUTE [None]
  - INTENTIONAL OVERDOSE [None]
  - SUICIDE ATTEMPT [None]
  - LEFT VENTRICULAR DYSFUNCTION [None]
  - ATRIOVENTRICULAR BLOCK FIRST DEGREE [None]
